FAERS Safety Report 23490374 (Version 1)
Quarter: 2024Q1

REPORT INFORMATION
  Report Type: Spontaneous
  Country: PL (occurrence: PL)
  Receive Date: 20240206
  Receipt Date: 20240206
  Transmission Date: 20240410
  Serious: Yes (Other)
  Sender: FDA-Public Use
  Company Number: PL-CELLTRION INC.-2023PL013061

PATIENT

DRUGS (29)
  1. RITUXIMAB [Suspect]
     Active Substance: RITUXIMAB
     Indication: Diffuse large B-cell lymphoma stage IV
     Dosage: 1 CYCLE
     Route: 065
     Dates: start: 202206
  2. RITUXIMAB [Suspect]
     Active Substance: RITUXIMAB
     Indication: Diffuse large B-cell lymphoma
     Dosage: SIX CYCLES/6 CYCLES
     Route: 065
     Dates: start: 2021
  3. RITUXIMAB [Suspect]
     Active Substance: RITUXIMAB
     Dosage: 1 CYCLE
     Route: 065
     Dates: start: 202205
  4. RITUXIMAB [Suspect]
     Active Substance: RITUXIMAB
     Dosage: UNK
     Route: 065
     Dates: start: 2021
  5. ADRIAMYCIN [Suspect]
     Active Substance: DOXORUBICIN HYDROCHLORIDE
     Indication: Diffuse large B-cell lymphoma stage IV
     Dosage: 1 CYCLE
     Route: 065
     Dates: start: 202205
  6. ADRIAMYCIN [Suspect]
     Active Substance: DOXORUBICIN HYDROCHLORIDE
     Indication: Diffuse large B-cell lymphoma
     Dosage: 6 CYCLES
     Route: 065
     Dates: start: 2021
  7. ADRIAMYCIN [Suspect]
     Active Substance: DOXORUBICIN HYDROCHLORIDE
     Dosage: 1 CYCLE
     Route: 065
     Dates: start: 202205
  8. CYCLOPHOSPHAMIDE [Suspect]
     Active Substance: CYCLOPHOSPHAMIDE
     Indication: Diffuse large B-cell lymphoma stage IV
     Dosage: UNK
     Route: 065
     Dates: start: 202211
  9. CYCLOPHOSPHAMIDE [Suspect]
     Active Substance: CYCLOPHOSPHAMIDE
     Indication: Diffuse large B-cell lymphoma
     Dosage: SIX CYCLES/6 CYCLES
     Route: 065
     Dates: start: 2021
  10. CYCLOPHOSPHAMIDE [Suspect]
     Active Substance: CYCLOPHOSPHAMIDE
     Dosage: UNK
     Route: 065
     Dates: start: 2022
  11. PREDNISONE [Suspect]
     Active Substance: PREDNISONE
     Indication: Diffuse large B-cell lymphoma
     Dosage: 6 CYCLES
     Route: 065
     Dates: start: 2021
  12. PREDNISONE [Suspect]
     Active Substance: PREDNISONE
     Dosage: 1 CYCLE
     Route: 065
     Dates: start: 202205
  13. PREDNISONE [Suspect]
     Active Substance: PREDNISONE
     Indication: Diffuse large B-cell lymphoma stage IV
     Dosage: SIX CYCLES
     Route: 065
     Dates: start: 2021
  14. PREDNISONE [Suspect]
     Active Substance: PREDNISONE
     Dosage: 1 CYCLE
     Route: 065
     Dates: start: 202205
  15. VINCRISTINE [Suspect]
     Active Substance: VINCRISTINE
     Indication: Diffuse large B-cell lymphoma stage IV
     Dosage: SIX CYCLES/6 CYCLES
     Route: 065
     Dates: start: 2021
  16. VINCRISTINE [Suspect]
     Active Substance: VINCRISTINE
     Indication: Diffuse large B-cell lymphoma
  17. CARBOPLATIN [Concomitant]
     Active Substance: CARBOPLATIN
     Dosage: UNK
     Dates: start: 202205
  18. CARBOPLATIN [Concomitant]
     Active Substance: CARBOPLATIN
     Dosage: UNK
     Dates: start: 202206
  19. CARBOPLATIN [Concomitant]
     Active Substance: CARBOPLATIN
     Dosage: UNK
     Dates: start: 2021
  20. CISPLATIN [Concomitant]
     Active Substance: CISPLATIN
  21. CYTARABINE [Concomitant]
     Active Substance: CYTARABINE
     Dosage: UNK
     Dates: start: 202205
  22. CYTARABINE [Concomitant]
     Active Substance: CYTARABINE
     Dosage: 6 CYCLE
     Dates: start: 2021
  23. DEXAMETHASONE [Concomitant]
     Active Substance: DEXAMETHASONE
     Dosage: 1 CYCLE
     Dates: start: 202205
  24. ETOPOSIDE [Concomitant]
     Active Substance: ETOPOSIDE
     Dosage: UNK
     Dates: start: 202206
  25. ETOPOSIDE [Concomitant]
     Active Substance: ETOPOSIDE
     Dosage: UNK
     Dates: start: 202208
  26. FLUDARABINE [Concomitant]
     Active Substance: FLUDARABINE PHOSPHATE
  27. IFOSFAMIDE [Concomitant]
     Active Substance: IFOSFAMIDE
     Dosage: UNK
     Dates: start: 202205
  28. IFOSFAMIDE [Concomitant]
     Active Substance: IFOSFAMIDE
     Dosage: UNK
     Dates: start: 202206
  29. METHOTREXATE [Concomitant]
     Active Substance: METHOTREXATE

REACTIONS (2)
  - Diffuse large B-cell lymphoma stage IV [Unknown]
  - Disease progression [Unknown]
